FAERS Safety Report 15869599 (Version 1)
Quarter: 2019Q1

REPORT INFORMATION
  Report Type: Report from Study
  Country: BR (occurrence: BR)
  Receive Date: 20190125
  Receipt Date: 20190125
  Transmission Date: 20190417
  Serious: Yes (Other)
  Sender: FDA-Public Use
  Company Number: PHHY2017BR197515

PATIENT
  Age: 68 Year
  Sex: Female
  Weight: 56 kg

DRUGS (2)
  1. ACLASTA [Suspect]
     Active Substance: ZOLEDRONIC ACID
     Indication: OSTEOPOROSIS
     Dosage: UNK UNK, Q12MO
     Route: 042
     Dates: start: 20171205
  2. ACLASTA [Suspect]
     Active Substance: ZOLEDRONIC ACID
     Dosage: UNK, Q12MO (5MG/100ML)
     Route: 042
     Dates: start: 20171212

REACTIONS (22)
  - Asthenia [Unknown]
  - Lactose intolerance [Unknown]
  - Multiple sclerosis [Not Recovered/Not Resolved]
  - Abdominal discomfort [Recovered/Resolved]
  - Influenza [Recovered/Resolved]
  - Dizziness [Recovered/Resolved]
  - Malaise [Unknown]
  - Mobility decreased [Unknown]
  - Kyphosis [Unknown]
  - Pain [Not Recovered/Not Resolved]
  - Gait disturbance [Recovered/Resolved]
  - Amnesia [Not Recovered/Not Resolved]
  - Weight decreased [Not Recovered/Not Resolved]
  - Feeling abnormal [Recovered/Resolved]
  - Diarrhoea [Recovered/Resolved]
  - Decreased appetite [Recovered/Resolved]
  - Muscular weakness [Unknown]
  - Pyrexia [Recovered/Resolved]
  - Body height decreased [Unknown]
  - Gluten sensitivity [Unknown]
  - Vomiting [Recovered/Resolved]
  - Retching [Recovered/Resolved]

NARRATIVE: CASE EVENT DATE: 20171206
